FAERS Safety Report 5434746-3 (Version None)
Quarter: 2007Q3

REPORT INFORMATION
  Report Type: 
  Country: None (occurrence: None)
  Receive Date: 20070828
  Receipt Date: 20070828
  Transmission Date: 20080115
  Serious: Yes (Hospitalization)
  Sender: FDA-Public Use
  Company Number: None

PATIENT
  Age: 55 Year
  Sex: Male
  Weight: 96.3 kg

DRUGS (2)
  1. GEMCITABINE HCL [Suspect]
     Indication: BLADDER CANCER
     Dosage: 2100MG D1,D8 EVERY 21 DAY IV
     Route: 042
     Dates: start: 20070820, end: 20070820
  2. CAPECITABINE [Suspect]
     Indication: BLADDER CANCER
     Dosage: 1050MG BID D1-14 PO
     Route: 048
     Dates: start: 20070820, end: 20070827

REACTIONS (2)
  - ARTHRALGIA [None]
  - PAIN IN EXTREMITY [None]
